FAERS Safety Report 4600841-1 (Version None)
Quarter: 2005Q1

REPORT INFORMATION
  Report Type: 
  Country: None (occurrence: None)
  Receive Date: 20050304
  Receipt Date: 20050228
  Transmission Date: 20050727
  Serious: Yes (Death, Hospitalization)
  Sender: FDA-Public Use
  Company Number: 2005PK00328

PATIENT
  Age: 93 Year
  Sex: Male
  Weight: 65 kg

DRUGS (7)
  1. SEROQUEL [Suspect]
     Indication: AGGRESSION
     Dosage: 12.5 QD PO
     Route: 048
     Dates: start: 20050113, end: 20050116
  2. SEROQUEL [Suspect]
     Indication: RESTLESSNESS
     Dosage: 12.5 QD PO
     Route: 048
     Dates: start: 20050113, end: 20050116
  3. DIPIPERON [Concomitant]
  4. REMERON [Concomitant]
  5. DISTRANEURIN [Concomitant]
  6. ENALAPRIL MALEATE AND HYDROCHLOROTHIAZIDE [Concomitant]
  7. DIAMICRON [Concomitant]

REACTIONS (1)
  - NEUROLEPTIC MALIGNANT SYNDROME [None]
